FAERS Safety Report 8327778-9 (Version None)
Quarter: 2012Q2

REPORT INFORMATION
  Report Type: 
  Country: None (occurrence: None)
  Receive Date: 20120502
  Receipt Date: 20120427
  Transmission Date: 20120825
  Serious: No
  Sender: FDA-Public Use
  Company Number: US-PFIZER INC-2012105279

PATIENT
  Sex: Female
  Weight: 95.2 kg

DRUGS (9)
  1. MAXZIDE [Concomitant]
     Dosage: UNK
  2. PROTONIX [Concomitant]
     Dosage: UNK
  3. XANAX [Concomitant]
     Dosage: UNK
  4. PREMARIN [Suspect]
     Indication: HORMONE REPLACEMENT THERAPY
     Dosage: 0.9 MG, 1X/DAY
     Route: 048
     Dates: start: 19981101
  5. PREMARIN [Suspect]
     Indication: HOT FLUSH
  6. AMBIEN [Concomitant]
     Dosage: UNK
  7. WELLBUTRIN [Concomitant]
     Dosage: UNK
  8. SEROQUEL [Concomitant]
     Dosage: UNK
  9. KLONOPIN [Concomitant]
     Dosage: UNK

REACTIONS (2)
  - EXPIRED DRUG ADMINISTERED [None]
  - HOT FLUSH [None]
